FAERS Safety Report 5691702-8 (Version None)
Quarter: 2008Q2

REPORT INFORMATION
  Report Type: 
  Country: None (occurrence: None)
  Receive Date: 20080402
  Receipt Date: 20070110
  Transmission Date: 20081010
  Serious: Yes (Death, Other)
  Sender: FDA-Public Use
  Company Number: FR-ROCHE-477946

PATIENT
  Age: 49 Year
  Sex: Female

DRUGS (2)
  1. CAPECITABINE [Suspect]
     Indication: BREAST CANCER
     Dosage: TAKEN FOR 14 DAYS.
     Route: 065
  2. GEMZAR [Suspect]
     Indication: BREAST CANCER
     Route: 065

REACTIONS (2)
  - DEATH [None]
  - DRUG TOXICITY [None]
